FAERS Safety Report 5782128-7 (Version None)
Quarter: 2008Q2

REPORT INFORMATION
  Report Type: 
  Country: None (occurrence: None)
  Receive Date: 20080623
  Receipt Date: 20080616
  Transmission Date: 20081010
  Serious: Yes (Other)
  Sender: FDA-Public Use
  Company Number: US-AMGEN-QUU287504

PATIENT
  Sex: Male

DRUGS (3)
  1. ENBREL [Suspect]
     Indication: RHEUMATOID ARTHRITIS
     Route: 058
  2. METHOTREXATE [Concomitant]
  3. PLAQUENIL [Concomitant]

REACTIONS (12)
  - ARTHRALGIA [None]
  - BACK PAIN [None]
  - CHRONIC OBSTRUCTIVE PULMONARY DISEASE [None]
  - DENTAL CARIES [None]
  - DEVICE BREAKAGE [None]
  - IMPLANT SITE PAIN [None]
  - INJECTION SITE BRUISING [None]
  - INJECTION SITE IRRITATION [None]
  - NECK PAIN [None]
  - SLEEP APNOEA SYNDROME [None]
  - TOOTH FRACTURE [None]
  - TOOTHACHE [None]
